FAERS Safety Report 12991574 (Version 3)
Quarter: 2017Q2

REPORT INFORMATION
  Report Type: Spontaneous
  Country: US (occurrence: US)
  Receive Date: 20161201
  Receipt Date: 20170407
  Transmission Date: 20170830
  Serious: Yes (Death, Hospitalization)
  Sender: FDA-Public Use
  Company Number: US-PFIZER INC-2016556370

PATIENT
  Age: 92 Year
  Sex: Male

DRUGS (5)
  1. FUROSEMIDE. [Concomitant]
     Active Substance: FUROSEMIDE
     Indication: FLUID RETENTION
     Dosage: UNK UNK, DAILY
     Dates: end: 20160425
  2. LYRICA [Suspect]
     Active Substance: PREGABALIN
     Indication: BURNING SENSATION
     Dosage: 20 MG,
     Dates: start: 20151101, end: 20160421
  3. PREDNISONE. [Concomitant]
     Active Substance: PREDNISONE
     Indication: PAIN
     Dosage: 5 MG, DAILY
     Dates: end: 20160425
  4. NIFEDIPINE. [Concomitant]
     Active Substance: NIFEDIPINE
     Indication: HYPERTENSION
     Dosage: UNK, DAILY
     Dates: end: 20160425
  5. ACETAMINOPHEN W/OXYCODONE [Concomitant]
     Active Substance: ACETAMINOPHEN\OXYCODONE HYDROCHLORIDE
     Indication: ARTHRITIS
     Dosage: UNK UNK, DAILY [OXYCODONE HYDROCHLORIDE: 5 MG; PARACETAMOL: 325 MG] (1 X 4 DAILY)
     Dates: end: 20160425

REACTIONS (1)
  - Death [Fatal]

NARRATIVE: CASE EVENT DATE: 20160425
